FAERS Safety Report 24992467 (Version 1)
Quarter: 2025Q1

REPORT INFORMATION
  Report Type: Report from Study
  Country: US (occurrence: US)
  Receive Date: 20250220
  Receipt Date: 20250220
  Transmission Date: 20250409
  Serious: Yes (Other)
  Sender: JOHNSON AND JOHNSON
  Company Number: US-JNJFOC-20250235318

PATIENT
  Age: 83 Year
  Sex: Female

DRUGS (27)
  1. SIMPONI [Suspect]
     Active Substance: GOLIMUMAB
     Indication: Product used for unknown indication
     Route: 058
  2. AMOXICILLIN [Concomitant]
     Active Substance: AMOXICILLIN
  3. BETAMETHASONE [Concomitant]
     Active Substance: BETAMETHASONE
  4. CALCITRIOL [Concomitant]
     Active Substance: CALCITRIOL
  5. METOLAZONE [Concomitant]
     Active Substance: METOLAZONE
  6. ALBUTEROL [Concomitant]
     Active Substance: ALBUTEROL
  7. CANRENOATE POTASSIUM [Concomitant]
     Active Substance: CANRENOATE POTASSIUM
  8. CELESTONE [Concomitant]
     Active Substance: BETAMETHASONE
  9. CETIRIZINE [Concomitant]
     Active Substance: CETIRIZINE HYDROCHLORIDE
  10. CLOBETASOL [Concomitant]
     Active Substance: CLOBETASOL
  11. CLOTRIMAZOLE [Concomitant]
     Active Substance: CLOTRIMAZOLE
  12. DIFLUCAN [Concomitant]
     Active Substance: FLUCONAZOLE
  13. ELIQUIS [Concomitant]
     Active Substance: APIXABAN
  14. ESOMEPRAZOLE [Concomitant]
     Active Substance: ESOMEPRAZOLE
  15. LASIX [Concomitant]
     Active Substance: FUROSEMIDE
  16. LEFLUNOMIDE [Concomitant]
     Active Substance: LEFLUNOMIDE
  17. LEVOTHYROXINE [Concomitant]
     Active Substance: LEVOTHYROXINE
  18. LYRICA [Concomitant]
     Active Substance: PREGABALIN
  19. MAGNESIUM [Concomitant]
     Active Substance: MAGNESIUM
  20. METOLAZONE [Concomitant]
     Active Substance: METOLAZONE
  21. VITAMINS [Concomitant]
     Active Substance: VITAMINS
  22. OCUVITE [ASCORBIC ACID;RETINOL;TOCOPHEROL] [Concomitant]
  23. PIMECROLIMUS [Concomitant]
     Active Substance: PIMECROLIMUS
  24. PRAVASTATIN [Concomitant]
     Active Substance: PRAVASTATIN
  25. PROBIOTICS NOS [Concomitant]
     Active Substance: PROBIOTICS NOS
  26. SINGULAIR [Concomitant]
     Active Substance: MONTELUKAST SODIUM
  27. SYMBICORT [Concomitant]
     Active Substance: BUDESONIDE\FORMOTEROL FUMARATE DIHYDRATE

REACTIONS (6)
  - Localised infection [Not Recovered/Not Resolved]
  - Cardiac pacemaker insertion [Not Recovered/Not Resolved]
  - Fall [Not Recovered/Not Resolved]
  - Pain in extremity [Not Recovered/Not Resolved]
  - Pruritus [Not Recovered/Not Resolved]
  - Impaired work ability [Not Recovered/Not Resolved]

NARRATIVE: CASE EVENT DATE: 20240201
